FAERS Safety Report 17757936 (Version 1)
Quarter: 2020Q2

REPORT INFORMATION
  Report Type: Report from Study
  Country: US (occurrence: US)
  Receive Date: 20200507
  Receipt Date: 20200507
  Transmission Date: 20200714
  Serious: Yes (Death)
  Sender: FDA-Public Use
  Company Number: US-ACTELION-A-US2019-196064

PATIENT
  Sex: Female
  Weight: 89.8 kg

DRUGS (2)
  1. TADALAFIL. [Concomitant]
     Active Substance: TADALAFIL
  2. OPSUMIT [Suspect]
     Active Substance: MACITENTAN
     Indication: PULMONARY ARTERIAL HYPERTENSION
     Dosage: 10 MG, QD
     Route: 048
     Dates: start: 20190808

REACTIONS (7)
  - Death [Fatal]
  - Nodule [Unknown]
  - Oedema peripheral [Unknown]
  - Headache [Unknown]
  - Cough [Unknown]
  - Back pain [Unknown]
  - Chest discomfort [Unknown]
